FAERS Safety Report 6648389-7 (Version None)
Quarter: 2010Q1

REPORT INFORMATION
  Report Type: 
  Country: None (occurrence: None)
  Receive Date: 20100324
  Receipt Date: 20100317
  Transmission Date: 20100710
  Serious: Yes (Death)
  Sender: FDA-Public Use
  Company Number: JP-ROCHE-692459

PATIENT
  Age: 13 Year
  Sex: Male

DRUGS (3)
  1. CELLCEPT [Suspect]
     Indication: ACUTE GRAFT VERSUS HOST DISEASE
     Route: 048
  2. METHYLPREDNISOLONE [Concomitant]
  3. ETANERCEPT [Concomitant]

REACTIONS (1)
  - MICROANGIOPATHY [None]
